FAERS Safety Report 11948102 (Version 1)
Quarter: 2016Q1

REPORT INFORMATION
  Report Type: Spontaneous
  Country: FR (occurrence: FR)
  Receive Date: 20160125
  Receipt Date: 20160125
  Transmission Date: 20160526
  Serious: Yes (Hospitalization, Other)
  Sender: FDA-Public Use
  Company Number: FR-JNJFOC-20160113961

PATIENT
  Age: 48 Year
  Sex: Male

DRUGS (1)
  1. XEPLION [Suspect]
     Active Substance: PALIPERIDONE PALMITATE
     Indication: SCHIZOPHRENIA
     Route: 030
     Dates: start: 2013, end: 2013

REACTIONS (4)
  - Delirium [Unknown]
  - Disinhibition [Not Recovered/Not Resolved]
  - Amnesia [Not Recovered/Not Resolved]
  - Libido disorder [Unknown]

NARRATIVE: CASE EVENT DATE: 2013
